FAERS Safety Report 15015196 (Version 1)
Quarter: 2018Q2

REPORT INFORMATION
  Report Type: Report from Study
  Country: US (occurrence: US)
  Receive Date: 20180615
  Receipt Date: 20180615
  Transmission Date: 20180711
  Serious: Yes (Other)
  Sender: FDA-Public Use
  Company Number: US-BIOGEN-2018BI00592593

PATIENT
  Age: 30 Year
  Sex: Female

DRUGS (1)
  1. TYSABRI [Suspect]
     Active Substance: NATALIZUMAB
     Indication: MULTIPLE SCLEROSIS
     Route: 042
     Dates: start: 20171228

REACTIONS (2)
  - Human papilloma virus test positive [Not Recovered/Not Resolved]
  - Ureaplasma infection [Not Recovered/Not Resolved]

NARRATIVE: CASE EVENT DATE: 201805
